FAERS Safety Report 19633419 (Version 3)
Quarter: 2021Q3

REPORT INFORMATION
  Report Type: Spontaneous
  Country: MY (occurrence: MY)
  Receive Date: 20210730
  Receipt Date: 20210916
  Transmission Date: 20211014
  Serious: Yes (Hospitalization)
  Sender: FDA-Public Use
  Company Number: MY-AMGEN-MYSSP2021114859

PATIENT
  Age: 51 Year
  Sex: Male

DRUGS (3)
  1. REPATHA [Suspect]
     Active Substance: EVOLOCUMAB
     Indication: PRODUCT USED FOR UNKNOWN INDICATION
     Dosage: 140 MILLIGRAM, Q2WK
     Route: 058
     Dates: start: 20210622
  2. DUPIXENT [Concomitant]
     Active Substance: DUPILUMAB
     Indication: DERMATITIS
     Dosage: UNK
  3. OZEMPIC [Concomitant]
     Active Substance: SEMAGLUTIDE
     Indication: DIABETES MELLITUS
     Dosage: 0.25 MILLIGRAM, QWK
     Route: 058
     Dates: start: 20210607

REACTIONS (2)
  - Unevaluable event [Unknown]
  - Itching scar [Recovered/Resolved]

NARRATIVE: CASE EVENT DATE: 20210622
